FAERS Safety Report 15055234 (Version 3)
Quarter: 2018Q4

REPORT INFORMATION
  Report Type: Spontaneous
  Country: US (occurrence: US)
  Receive Date: 20180622
  Receipt Date: 20181218
  Transmission Date: 20190204
  Serious: Yes (Disabling)
  Sender: FDA-Public Use
  Company Number: US-OTSUKA-2018_016383

PATIENT
  Sex: Male

DRUGS (4)
  1. ABILIFY [Suspect]
     Active Substance: ARIPIPRAZOLE
     Indication: ANXIETY
  2. ABILIFY [Suspect]
     Active Substance: ARIPIPRAZOLE
     Indication: BIPOLAR DISORDER
     Dosage: 2MG}10MG, QD
     Route: 065
     Dates: start: 2008, end: 2017
  3. ABILIFY [Suspect]
     Active Substance: ARIPIPRAZOLE
     Indication: MAJOR DEPRESSION
  4. ARIPIPRAZOLE. [Concomitant]
     Active Substance: ARIPIPRAZOLE
     Indication: PRODUCT USED FOR UNKNOWN INDICATION
     Dosage: UNK
     Route: 065
     Dates: start: 20150814, end: 20171226

REACTIONS (13)
  - Gambling disorder [Recovered/Resolved]
  - Personal relationship issue [Unknown]
  - Impaired quality of life [Unknown]
  - Disability [Unknown]
  - Condition aggravated [Recovered/Resolved]
  - Mental impairment [Unknown]
  - Fear [Unknown]
  - Anxiety [Unknown]
  - Social problem [Unknown]
  - Economic problem [Unknown]
  - Product use in unapproved indication [Unknown]
  - Emotional distress [Unknown]
  - Pain [Unknown]

NARRATIVE: CASE EVENT DATE: 2012
